FAERS Safety Report 17794330 (Version 2)
Quarter: 2020Q2

REPORT INFORMATION
  Report Type: Spontaneous
  Country: DE (occurrence: DE)
  Receive Date: 20200515
  Receipt Date: 20200527
  Transmission Date: 20200714
  Serious: Yes (Other)
  Sender: FDA-Public Use
  Company Number: DE-BAYER-2020-084661

PATIENT
  Age: 69 Year
  Sex: Male

DRUGS (1)
  1. SORAFENIB (RAF KINASE INHIBITOR) [Suspect]
     Active Substance: SORAFENIB
     Indication: HEPATOCELLULAR CARCINOMA
     Dosage: 400 MG, QD
     Route: 048
     Dates: start: 201911, end: 202005

REACTIONS (4)
  - Hepatocellular carcinoma [Not Recovered/Not Resolved]
  - Pneumonia aspiration [None]
  - Wrong technique in product usage process [None]
  - Off label use [None]

NARRATIVE: CASE EVENT DATE: 202005
